FAERS Safety Report 6993800-5 (Version None)
Quarter: 2010Q3

REPORT INFORMATION
  Report Type: 
  Country: None (occurrence: None)
  Receive Date: 20100917
  Receipt Date: 20100602
  Transmission Date: 20110219
  Serious: No
  Sender: FDA-Public Use
  Company Number: US-ASTRAZENECA-2010SE25422

PATIENT
  Age: 46 Year
  Sex: Female
  Weight: 57.2 kg

DRUGS (1)
  1. SEROQUEL [Suspect]
     Indication: DISSOCIATIVE DISORDER
     Route: 048

REACTIONS (3)
  - DRUG DOSE OMISSION [None]
  - FATIGUE [None]
  - FEELING ABNORMAL [None]
